FAERS Safety Report 18234500 (Version 1)
Quarter: 2020Q3

REPORT INFORMATION
  Report Type: Report from Study
  Country: NL (occurrence: NL)
  Receive Date: 20200904
  Receipt Date: 20200904
  Transmission Date: 20201103
  Serious: Yes (Congenital Anomaly, Other)
  Sender: FDA-Public Use
  Company Number: NL-GLAXOSMITHKLINE-NL2020GSK177930

PATIENT
  Sex: Female

DRUGS (6)
  1. FOLIC ACID. [Concomitant]
     Active Substance: FOLIC ACID
     Indication: PRODUCT USED FOR UNKNOWN INDICATION
     Dosage: UNK
  2. MACROGOL [Concomitant]
     Active Substance: POLYETHYLENE GLYCOLS
     Indication: PRODUCT USED FOR UNKNOWN INDICATION
     Dosage: 3 DAYS
     Dates: start: 201410
  3. CALCIUM CARBONATE + MAGNESIUM CARBONATE [Concomitant]
     Indication: PRODUCT USED FOR UNKNOWN INDICATION
     Dosage: UNK
     Dates: start: 201504
  4. GAVISCON (ALGINATE DE SODIUM + BICARBONATE DE SODIUM) [Concomitant]
     Dosage: UNK
     Dates: start: 201505, end: 20150613
  5. VALACICLOVIR HYDROCHLORIDE [Suspect]
     Active Substance: VALACYCLOVIR HYDROCHLORIDE
     Indication: PRODUCT USED FOR UNKNOWN INDICATION
     Dosage: DOSAGE UNKNOWN
     Dates: start: 201410
  6. GAVISCON (ALGINATE DE SODIUM + BICARBONATE DE SODIUM) [Concomitant]
     Indication: PRODUCT USED FOR UNKNOWN INDICATION
     Dosage: UNK
     Dates: start: 201410

REACTIONS (3)
  - Congenital pyelocaliectasis [Unknown]
  - Foetal exposure during pregnancy [Unknown]
  - Congenital hydronephrosis [Unknown]

NARRATIVE: CASE EVENT DATE: 20150613
